FAERS Safety Report 17546396 (Version 1)
Quarter: 2020Q1

REPORT INFORMATION
  Report Type: Spontaneous
  Country: US (occurrence: US)
  Receive Date: 20200316
  Receipt Date: 20200316
  Transmission Date: 20200409
  Serious: Yes (Life-Threatening, Hospitalization, Disabling, Other)
  Sender: FDA-Public Use
  Company Number: US-009507513-2003USA004812

PATIENT
  Age: 64 Year
  Sex: Female
  Weight: 260 kg

DRUGS (1)
  1. BRIDION [Suspect]
     Active Substance: SUGAMMADEX
     Dosage: 4 MILLIGRAM/KILOGRAM (800 MG)
     Route: 042
     Dates: start: 20191206, end: 20191206

REACTIONS (2)
  - Cardio-respiratory arrest [Recovered/Resolved]
  - Cardiac failure congestive [Recovered/Resolved]

NARRATIVE: CASE EVENT DATE: 20191206
